FAERS Safety Report 9436694 (Version 3)
Quarter: 2014Q2

REPORT INFORMATION
  Report Type: Spontaneous
  Country: CH (occurrence: CH)
  Receive Date: 20130802
  Receipt Date: 20140408
  Transmission Date: 20141212
  Serious: Yes (Death)
  Sender: FDA-Public Use
  Company Number: CH-JNJFOC-20130718226

PATIENT
  Age: 78 Year
  Sex: Male

DRUGS (13)
  1. XARELTO [Suspect]
     Indication: KNEE ARTHROPLASTY
     Route: 048
     Dates: start: 20121208, end: 20121227
  2. XARELTO [Suspect]
     Indication: THROMBOSIS PROPHYLAXIS
     Route: 048
     Dates: start: 20121208, end: 20121227
  3. NOVALGIN [Concomitant]
     Route: 048
     Dates: start: 20121128
  4. NOVALGIN [Concomitant]
     Route: 048
     Dates: start: 20121208
  5. ESOMEPRAZOLE [Concomitant]
     Route: 065
  6. LISINOPRIL W/HYDROCHLOROTHIAZIDE [Concomitant]
     Route: 065
  7. KEFZOL [Concomitant]
     Indication: PREOPERATIVE CARE
     Route: 042
     Dates: start: 20121129, end: 20121129
  8. EUTHYROX [Concomitant]
     Route: 065
  9. PRADIF [Concomitant]
     Route: 065
  10. MAGNESIOCARD [Concomitant]
     Route: 065
  11. DAFALGAN [Concomitant]
     Route: 065
     Dates: start: 20121128, end: 20121207
  12. DAFALGAN [Concomitant]
     Route: 065
     Dates: start: 20121208
  13. NEBILET [Concomitant]
     Route: 048

REACTIONS (1)
  - Hepatitis cholestatic [Fatal]
